FAERS Safety Report 15505020 (Version 1)
Quarter: 2018Q4

REPORT INFORMATION
  Report Type: Spontaneous
  Country: US (occurrence: US)
  Receive Date: 20181009
  Receipt Date: 20181009
  Transmission Date: 20190205
  Serious: Yes (Other)
  Sender: FDA-Public Use
  Company Number: None

PATIENT
  Age: 48 Year
  Sex: Female
  Weight: 112.94 kg

DRUGS (1)
  1. LANSOPRAZOLE 30MG [Suspect]
     Active Substance: LANSOPRAZOLE
     Indication: GASTROOESOPHAGEAL REFLUX DISEASE
     Route: 044

REACTIONS (3)
  - Back pain [None]
  - Drug ineffective [None]
  - Chest pain [None]

NARRATIVE: CASE EVENT DATE: 201805
